FAERS Safety Report 15310746 (Version 3)
Quarter: 2019Q1

REPORT INFORMATION
  Report Type: Report from Study
  Country: DE (occurrence: DE)
  Receive Date: 20180823
  Receipt Date: 20190315
  Transmission Date: 20190417
  Serious: Yes (Death, Life-Threatening, Hospitalization)
  Sender: FDA-Public Use
  Company Number: DE-PFIZER INC-2018337149

PATIENT
  Age: 71 Year
  Sex: Male
  Weight: 88 kg

DRUGS (7)
  1. IRINOTECAN [Suspect]
     Active Substance: IRINOTECAN
     Indication: COLORECTAL CANCER METASTATIC
     Dosage: 80 MG/M2, WEEKLY
     Route: 042
     Dates: start: 20151029, end: 20180604
  2. ERBITUX [Suspect]
     Active Substance: CETUXIMAB
     Dosage: 125 MG/M2, WEEKLY
     Route: 042
     Dates: start: 20170518, end: 20180604
  3. PARACETAMOL [Concomitant]
     Active Substance: ACETAMINOPHEN
     Indication: PREMEDICATION
     Dosage: 1000 MG, UNK
     Route: 048
  4. ERBITUX [Suspect]
     Active Substance: CETUXIMAB
     Indication: COLORECTAL CANCER METASTATIC
     Dosage: 400 MG/M2, WEEKLY
     Route: 042
     Dates: start: 20151119, end: 20151119
  5. ERBITUX [Suspect]
     Active Substance: CETUXIMAB
     Dosage: 250 MG/M2, WEEKLY
     Route: 042
     Dates: start: 20151126
  6. CALCIUM FOLINATE [Suspect]
     Active Substance: LEUCOVORIN CALCIUM
     Indication: COLORECTAL CANCER METASTATIC
     Dosage: 500 MG/M2, WEEKLY
     Route: 042
     Dates: start: 20151029
  7. 5-FLUOROURACIL [Suspect]
     Active Substance: FLUOROURACIL
     Indication: COLORECTAL CANCER METASTATIC
     Dosage: 2000 MG/M2, WEEKLY
     Route: 042
     Dates: start: 20151029, end: 20180604

REACTIONS (2)
  - Cardio-respiratory arrest [Recovered/Resolved]
  - Pneumonia [Fatal]

NARRATIVE: CASE EVENT DATE: 20180605
